FAERS Safety Report 17751359 (Version 1)
Quarter: 2020Q2

REPORT INFORMATION
  Report Type: Spontaneous
  Country: US (occurrence: US)
  Receive Date: 20200506
  Receipt Date: 20200506
  Transmission Date: 20200714
  Serious: No
  Sender: FDA-Public Use
  Company Number: None

PATIENT
  Age: 33 Year
  Sex: Female
  Weight: 57 kg

DRUGS (1)
  1. CEPHALEXIN 250MG CAP LUP [Suspect]
     Active Substance: CEPHALEXIN
     Indication: URINARY TRACT INFECTION
     Dosage: ?          QUANTITY:42 CAPSULE(S);?
     Route: 048
     Dates: start: 20200505, end: 20200505

REACTIONS (3)
  - Dyspnoea [None]
  - Chills [None]
  - Hallucination [None]

NARRATIVE: CASE EVENT DATE: 20200505
